FAERS Safety Report 6253020-9 (Version None)
Quarter: 2009Q2

REPORT INFORMATION
  Report Type: 
  Country: None (occurrence: None)
  Receive Date: 20090629
  Receipt Date: 20090629
  Transmission Date: 20091009
  Serious: No
  Sender: FDA-Public Use
  Company Number: None

PATIENT
  Age: 61 Year
  Sex: Female
  Weight: 67.1324 kg

DRUGS (2)
  1. TAXOL [Suspect]
     Indication: BREAST CANCER STAGE I
     Dosage: 288 MG EVERY 2 WEEKS IV
     Route: 042
     Dates: start: 20081224
  2. PEGFILGRASTIM [Concomitant]

REACTIONS (4)
  - OEDEMA PERIPHERAL [None]
  - PAIN IN EXTREMITY [None]
  - PALMAR-PLANTAR ERYTHRODYSAESTHESIA SYNDROME [None]
  - SKIN EXFOLIATION [None]
